FAERS Safety Report 5407949-1 (Version None)
Quarter: 2007Q3

REPORT INFORMATION
  Report Type: 
  Country: None (occurrence: None)
  Receive Date: 20070723
  Receipt Date: 20070709
  Transmission Date: 20080115
  Serious: Yes (Hospitalization, Other)
  Sender: FDA-Public Use
  Company Number: WSDF_00658

PATIENT
  Age: 31 Year
  Sex: Female
  Weight: 83 kg

DRUGS (3)
  1. WINRHO SDF [Suspect]
     Indication: BLOOD PRODUCT TRANSFUSION
     Dosage: 108.4 UG/KG ONCE IV
     Route: 042
     Dates: start: 20070630, end: 20070630
  2. WINRHO SDF [Suspect]
     Indication: BLOOD PRODUCT TRANSFUSION
     Dosage: 201.2 UG/KG ONCE IV
     Route: 042
     Dates: start: 20070701, end: 20070701
  3. WINRHO SDF [Suspect]
     Indication: BLOOD PRODUCT TRANSFUSION
     Dosage: 232.5 UG/KG ONCE IV
     Route: 042
     Dates: start: 20070702, end: 20070702

REACTIONS (8)
  - ANTI FACTOR V ANTIBODY POSITIVE [None]
  - ANTIBODY TEST POSITIVE [None]
  - BACTERIAL INFECTION [None]
  - CULTURE URINE POSITIVE [None]
  - HAEMODIALYSIS [None]
  - PANEL-REACTIVE ANTIBODY INCREASED [None]
  - RENAL FAILURE [None]
  - RHESUS ANTIBODIES [None]
